FAERS Safety Report 9117120 (Version 1)
Quarter: 2013Q1

REPORT INFORMATION
  Report Type: Spontaneous
  Country: GR (occurrence: GR)
  Receive Date: 20130208
  Receipt Date: 20130208
  Transmission Date: 20140127
  Serious: Yes (Death)
  Sender: FDA-Public Use
  Company Number: GR-PFIZER INC-2013049965

PATIENT
  Age: 78 Year
  Sex: Male

DRUGS (5)
  1. METHYLPREDNISOLONE SODIUM SUCCINATE [Suspect]
     Dosage: PULSES OF HIGH DOSE
  2. PREDNISONE [Suspect]
     Dosage: 1MG/KG
  3. CYCLOPHOSPHAMIDE [Suspect]
  4. CYCLOSPORINE [Suspect]
  5. FOLATE [Suspect]

REACTIONS (3)
  - Drug ineffective [Fatal]
  - Condition aggravated [Fatal]
  - Lower respiratory tract infection [Fatal]
